FAERS Safety Report 17637164 (Version 1)
Quarter: 2020Q2

REPORT INFORMATION
  Report Type: Spontaneous
  Country: US (occurrence: US)
  Receive Date: 20200406
  Receipt Date: 20200406
  Transmission Date: 20200713
  Serious: No
  Sender: FDA-Public Use
  Company Number: None

PATIENT
  Age: 56 Year
  Sex: Female

DRUGS (1)
  1. ENBREL [Suspect]
     Active Substance: ETANERCEPT
     Indication: RHEUMATOID ARTHRITIS
     Dates: start: 20200101

REACTIONS (4)
  - Treatment noncompliance [None]
  - Drug delivery system malfunction [None]
  - Memory impairment [None]
  - Cough [None]

NARRATIVE: CASE EVENT DATE: 20200101
